FAERS Safety Report 14056657 (Version 1)
Quarter: 2017Q4

REPORT INFORMATION
  Report Type: Spontaneous
  Country: SE (occurrence: SE)
  Receive Date: 20171006
  Receipt Date: 20171006
  Transmission Date: 20180321
  Serious: Yes (Other)
  Sender: FDA-Public Use
  Company Number: SE-PFIZER INC-2017423510

PATIENT
  Age: 8 Year
  Sex: Male

DRUGS (2)
  1. RIFABUTIN. [Suspect]
     Active Substance: RIFABUTIN
     Indication: MYCOBACTERIUM AVIUM COMPLEX INFECTION
  2. RIFABUTIN. [Suspect]
     Active Substance: RIFABUTIN
     Indication: OSTEOMYELITIS
     Dosage: 300 MG, DAILY

REACTIONS (2)
  - Corneal deposits [Unknown]
  - Retinal injury [Unknown]
